FAERS Safety Report 4348581-0 (Version None)
Quarter: 2004Q2

REPORT INFORMATION
  Report Type: 
  Country: None (occurrence: None)
  Receive Date: 20040422
  Receipt Date: 20040402
  Transmission Date: 20050107
  Serious: Yes (Hospitalization)
  Sender: FDA-Public Use
  Company Number: EWC040438762

PATIENT
  Age: 75 Year
  Sex: Male

DRUGS (13)
  1. HUMALOG [Suspect]
     Indication: DIABETES MELLITUS NON-INSULIN-DEPENDENT
     Dosage: 10 IU DAY
     Dates: end: 20040316
  2. HUMULIN R [Suspect]
     Indication: DIABETES MELLITUS NON-INSULIN-DEPENDENT
     Dosage: 13 IU IN THE MORNING
     Dates: end: 20040316
  3. MIXTARD 30 HM [Concomitant]
  4. INSULIN BASAL (INSULIN ISOPHANE HUMAN SEMISYNTHETIC) [Concomitant]
  5. ASPIRIN [Concomitant]
  6. TOREM (TORASEMIDE) [Concomitant]
  7. PRADIF (TAMSULOSIN HYDROCHLORIDE) [Concomitant]
  8. APROVEL (IRBESARTAN) [Concomitant]
  9. TENORMIN [Concomitant]
  10. SEROPAM (CITALOPRAM HYDROBROMIDE) [Concomitant]
  11. ZOCOR [Concomitant]
  12. ALLOPURINOL [Concomitant]
  13. STILNOX (ZOLPIDEM) [Concomitant]

REACTIONS (3)
  - APPETITE DISORDER [None]
  - DRUG INTERACTION POTENTIATION [None]
  - HYPOGLYCAEMIA [None]
